FAERS Safety Report 9049642 (Version 4)
Quarter: 2013Q2

REPORT INFORMATION
  Report Type: Spontaneous
  Country: CH (occurrence: CH)
  Receive Date: 20130205
  Receipt Date: 20130423
  Transmission Date: 20140414
  Serious: Yes (Hospitalization, Other)
  Sender: FDA-Public Use
  Company Number: CH-ABBOTT-12P-151-0950613-00

PATIENT
  Age: 45 Year
  Sex: Male
  Weight: 66 kg

DRUGS (6)
  1. HUMIRA [Suspect]
     Indication: PSORIATIC ARTHROPATHY
     Route: 058
     Dates: start: 20100420, end: 20120326
  2. HUMIRA [Suspect]
     Indication: ARTHRITIS ENTEROPATHIC
     Dosage: EVERY 3-4 WEEKS
     Route: 058
     Dates: start: 201207, end: 20120824
  3. METHOTREXATE [Concomitant]
     Indication: PSORIATIC ARTHROPATHY
     Route: 058
     Dates: start: 201004
  4. METHOTREXATE [Concomitant]
     Indication: ARTHRITIS ENTEROPATHIC
  5. FOLIC ACID [Concomitant]
     Indication: PRODUCT USED FOR UNKNOWN INDICATION
  6. ORENCIA [Concomitant]
     Indication: PRODUCT USED FOR UNKNOWN INDICATION
     Dates: start: 201203, end: 201208

REACTIONS (8)
  - Respiratory tract inflammation [Not Recovered/Not Resolved]
  - Sarcoidosis [Recovering/Resolving]
  - Lymphoma [Not Recovered/Not Resolved]
  - Weight decreased [Not Recovered/Not Resolved]
  - Back pain [Unknown]
  - Lung disorder [Not Recovered/Not Resolved]
  - Eosinophilia [Unknown]
  - Psoriatic arthropathy [Recovering/Resolving]
